FAERS Safety Report 15094203 (Version 1)
Quarter: 2018Q3

REPORT INFORMATION
  Report Type: Spontaneous
  Country: IT (occurrence: IT)
  Receive Date: 20180630
  Receipt Date: 20180630
  Transmission Date: 20181010
  Serious: Yes (Hospitalization)
  Sender: FDA-Public Use
  Company Number: IT-TEVA-2018-IT-917461

PATIENT
  Age: 82 Year
  Sex: Female
  Weight: 55 kg

DRUGS (1)
  1. ALLOPURINOLO TEVA [Suspect]
     Active Substance: ALLOPURINOL
     Indication: HYPERURICAEMIA
     Dosage: 300 MILLIGRAM DAILY;
     Route: 048
     Dates: start: 20180219, end: 20180221

REACTIONS (1)
  - Erythema [Recovering/Resolving]

NARRATIVE: CASE EVENT DATE: 20180221
